FAERS Safety Report 10244823 (Version 5)
Quarter: 2014Q4

REPORT INFORMATION
  Report Type: Spontaneous
  Country: JP (occurrence: JP)
  Receive Date: 20140618
  Receipt Date: 20141013
  Transmission Date: 20150528
  Serious: Yes (Hospitalization, Other)
  Sender: FDA-Public Use
  Company Number: JP-JNJFOC-20140606746

PATIENT
  Age: 47 Year
  Sex: Female
  Weight: 67 kg

DRUGS (45)
  1. RISPERDAL [Suspect]
     Active Substance: RISPERIDONE
     Indication: SCHIZOPHRENIA
     Route: 048
     Dates: start: 201311, end: 20131111
  2. RAMELTEON [Suspect]
     Active Substance: RAMELTEON
     Indication: INSOMNIA
     Route: 048
     Dates: start: 20140418, end: 20140511
  3. AKINETON [Concomitant]
     Active Substance: BIPERIDEN HYDROCHLORIDE
     Indication: SCHIZOPHRENIA
     Dosage: IN THE MORNING AND IN THE EVENING
     Route: 048
  4. CELECOX [Concomitant]
     Active Substance: CELECOXIB
     Indication: SCHIZOPHRENIA
     Route: 048
     Dates: start: 20131118, end: 20131126
  5. SEPAZON [Concomitant]
     Active Substance: CLOXAZOLAM
     Indication: SCHIZOPHRENIA
     Route: 048
     Dates: end: 20140316
  6. KERATINAMIN [Concomitant]
     Active Substance: UREA
     Indication: HYPERKERATOSIS
     Route: 061
     Dates: start: 20140207
  7. XEPLION [Suspect]
     Active Substance: PALIPERIDONE PALMITATE
     Indication: SCHIZOPHRENIA
     Route: 030
     Dates: start: 20140221, end: 20140221
  8. AKINETON [Concomitant]
     Active Substance: BIPERIDEN HYDROCHLORIDE
     Indication: SCHIZOPHRENIA
     Dosage: IN THE MORNING AND IN THE EVENING
     Route: 048
     Dates: start: 20140127, end: 20140206
  9. WYPAX [Concomitant]
     Active Substance: LORAZEPAM
     Indication: SCHIZOPHRENIA
     Route: 048
     Dates: start: 20130225, end: 20130325
  10. MEILAX [Concomitant]
     Active Substance: ETHYL LOFLAZEPATE
     Indication: SCHIZOPHRENIA
     Route: 048
     Dates: start: 20130218, end: 20130221
  11. FULMETA [Concomitant]
     Active Substance: MOMETASONE
     Indication: ECZEMA
     Route: 061
     Dates: start: 20131209
  12. DOMPERIDONE [Concomitant]
     Active Substance: DOMPERIDONE
     Indication: ABDOMINAL PAIN UPPER
     Route: 048
     Dates: start: 20140411
  13. LAMICTAL [Suspect]
     Active Substance: LAMOTRIGINE
     Indication: PRODUCT USED FOR UNKNOWN INDICATION
     Route: 048
     Dates: start: 2014
  14. AKINETON [Concomitant]
     Active Substance: BIPERIDEN HYDROCHLORIDE
     Indication: SCHIZOPHRENIA
     Route: 048
     Dates: start: 20140221
  15. AKINETON [Concomitant]
     Active Substance: BIPERIDEN HYDROCHLORIDE
     Indication: SCHIZOPHRENIA
     Dosage: IN THE MORNING, AROUND NOON AND IN THE??EVENING
     Route: 048
  16. MEILAX [Concomitant]
     Active Substance: ETHYL LOFLAZEPATE
     Indication: SCHIZOPHRENIA
     Route: 048
     Dates: start: 20140106, end: 20140116
  17. SEPAZON [Concomitant]
     Active Substance: CLOXAZOLAM
     Indication: SCHIZOPHRENIA
     Route: 048
     Dates: start: 20140425
  18. LEVOMEPROMAZINE MALEATE [Concomitant]
     Active Substance: LEVOMEPROMAZINE MALEATE
     Indication: SCHIZOPHRENIA
     Route: 048
     Dates: start: 20140307, end: 20140309
  19. HEPARINOID [Concomitant]
     Active Substance: CHONDROITIN SULFATE (BOVINE)
     Indication: ECZEMA
     Route: 061
     Dates: start: 20131209
  20. AKINETON [Concomitant]
     Active Substance: BIPERIDEN HYDROCHLORIDE
     Indication: SCHIZOPHRENIA
     Route: 048
     Dates: end: 20140512
  21. WYPAX [Concomitant]
     Active Substance: LORAZEPAM
     Indication: SCHIZOPHRENIA
     Route: 048
     Dates: start: 20131216, end: 20140105
  22. LULLAN [Concomitant]
     Active Substance: PEROSPIRONE HYDROCHLORIDE
     Indication: SCHIZOPHRENIA
     Route: 048
     Dates: start: 20140419, end: 20140527
  23. LULLAN [Concomitant]
     Active Substance: PEROSPIRONE HYDROCHLORIDE
     Indication: SCHIZOPHRENIA
     Route: 048
     Dates: start: 20140328, end: 20140403
  24. CALONAL [Concomitant]
     Active Substance: ACETAMINOPHEN
     Indication: HEADACHE
     Route: 048
     Dates: start: 20140409
  25. AKINETON [Concomitant]
     Active Substance: BIPERIDEN HYDROCHLORIDE
     Indication: SCHIZOPHRENIA
     Route: 048
     Dates: start: 20130225, end: 20130325
  26. INDERAL [Concomitant]
     Active Substance: PROPRANOLOL HYDROCHLORIDE
     Indication: SCHIZOPHRENIA
     Dates: start: 20140404, end: 20140410
  27. MEILAX [Concomitant]
     Active Substance: ETHYL LOFLAZEPATE
     Indication: SCHIZOPHRENIA
     Route: 048
     Dates: start: 20140304, end: 20140306
  28. SEDIEL [Concomitant]
     Active Substance: TANDOSPIRONE
     Indication: SCHIZOPHRENIA
     Route: 048
     Dates: end: 20140424
  29. LAMICTAL [Suspect]
     Active Substance: LAMOTRIGINE
     Indication: PRODUCT USED FOR UNKNOWN INDICATION
     Route: 048
     Dates: start: 20140630, end: 20140723
  30. AKINETON [Concomitant]
     Active Substance: BIPERIDEN HYDROCHLORIDE
     Indication: SCHIZOPHRENIA
     Route: 048
     Dates: start: 2014
  31. SEROQUEL [Concomitant]
     Active Substance: QUETIAPINE FUMARATE
     Indication: SCHIZOPHRENIA
     Route: 048
     Dates: start: 20131118, end: 20140127
  32. SEPAZON [Concomitant]
     Active Substance: CLOXAZOLAM
     Indication: SCHIZOPHRENIA
     Route: 048
     Dates: start: 20140307
  33. SEDIEL [Concomitant]
     Active Substance: TANDOSPIRONE
     Indication: SCHIZOPHRENIA
     Route: 048
     Dates: start: 20140414
  34. MENTAX [Concomitant]
     Active Substance: BUTENAFINE HYDROCHLORIDE
     Indication: TINEA PEDIS
     Route: 061
     Dates: start: 20140207
  35. LOXONIN [Concomitant]
     Active Substance: LOXOPROFEN SODIUM
     Indication: HEADACHE
     Route: 048
     Dates: start: 20140411, end: 20140417
  36. XEPLION [Suspect]
     Active Substance: PALIPERIDONE PALMITATE
     Indication: SCHIZOPHRENIA
     Route: 030
     Dates: start: 20140324, end: 20140324
  37. RISPERDAL [Suspect]
     Active Substance: RISPERIDONE
     Indication: SCHIZOPHRENIA
     Route: 048
     Dates: start: 20140303, end: 20140306
  38. ZYPREXA [Suspect]
     Active Substance: OLANZAPINE
     Indication: SCHIZOPHRENIA
     Route: 048
     Dates: start: 20140404, end: 20140512
  39. ZYPREXA [Suspect]
     Active Substance: OLANZAPINE
     Indication: SCHIZOPHRENIA
     Route: 048
     Dates: start: 20130218, end: 20130224
  40. XEPLION [Suspect]
     Active Substance: PALIPERIDONE PALMITATE
     Indication: SCHIZOPHRENIA
     Route: 030
     Dates: start: 20140117, end: 20140117
  41. CONTOMIN [Suspect]
     Active Substance: CHLORPROMAZINE
     Indication: SCHIZOPHRENIA
     Route: 048
     Dates: start: 20140421, end: 20140511
  42. SEROQUEL [Concomitant]
     Active Substance: QUETIAPINE FUMARATE
     Indication: SCHIZOPHRENIA
     Route: 048
     Dates: start: 20131122, end: 20140116
  43. WYPAX [Concomitant]
     Active Substance: LORAZEPAM
     Indication: SCHIZOPHRENIA
     Route: 048
     Dates: start: 20140127, end: 20140303
  44. RIVOTRIL [Concomitant]
     Active Substance: CLONAZEPAM
     Indication: SCHIZOPHRENIA
     Route: 048
     Dates: start: 20140404, end: 20140410
  45. LAC-B [Concomitant]
     Active Substance: BIFIDOBACTERIUM SPP.
     Indication: DIARRHOEA
     Route: 048
     Dates: start: 20140414, end: 20140512

REACTIONS (4)
  - Drug-induced liver injury [Recovered/Resolved]
  - Akinesia [Recovered/Resolved]
  - Drug eruption [Recovered/Resolved]
  - Akathisia [Recovered/Resolved]

NARRATIVE: CASE EVENT DATE: 20140121
